FAERS Safety Report 23122396 (Version 1)
Quarter: 2023Q4

REPORT INFORMATION
  Report Type: Spontaneous
  Country: AT (occurrence: AT)
  Receive Date: 20231030
  Receipt Date: 20231030
  Transmission Date: 20240109
  Serious: Yes (Other)
  Sender: FDA-Public Use
  Company Number: AT-ABBVIE-5440349

PATIENT
  Age: 73 Year
  Sex: Female

DRUGS (9)
  1. ADALIMUMAB [Suspect]
     Active Substance: ADALIMUMAB\ISOPROPYL ALCOHOL
     Indication: Seronegative arthritis
     Dosage: 15 MILLIGRAM
     Route: 058
     Dates: start: 202105, end: 202107
  2. SECUKINUMAB [Suspect]
     Active Substance: SECUKINUMAB
     Indication: Product used for unknown indication
     Dosage: UNK
     Route: 065
  3. GOLIMUMAB [Suspect]
     Active Substance: GOLIMUMAB
     Indication: Product used for unknown indication
     Dosage: STOP DATE:2023
     Route: 065
     Dates: start: 202301
  4. RINVOQ [Suspect]
     Active Substance: UPADACITINIB
     Indication: Seronegative arthritis
     Dosage: UNK
     Route: 048
     Dates: start: 2020
  5. TOCILIZUMAB [Suspect]
     Active Substance: TOCILIZUMAB
     Indication: Product used for unknown indication
     Dosage: UNK
     Route: 065
  6. FILGOTINIB [Suspect]
     Active Substance: FILGOTINIB
     Indication: Product used for unknown indication
     Dosage: UNK
     Route: 065
  7. DENOSUMAB [Concomitant]
     Active Substance: DENOSUMAB
     Indication: Product used for unknown indication
     Dosage: UNK
  8. PROLIA [Concomitant]
     Active Substance: DENOSUMAB
     Indication: Osteoporosis
     Dosage: UNK
  9. PREDNISOLONE [Concomitant]
     Active Substance: PREDNISOLONE
     Indication: Product used for unknown indication
     Dosage: UNK

REACTIONS (15)
  - Leukopenia [Unknown]
  - Peripheral swelling [Unknown]
  - Myalgia [Unknown]
  - Dactylitis [Unknown]
  - Somnolence [Recovered/Resolved]
  - Oral disorder [Unknown]
  - Therapeutic product effect decreased [Unknown]
  - Dizziness [Recovered/Resolved]
  - Arthritis [Unknown]
  - Arthralgia [Not Recovered/Not Resolved]
  - Arthralgia [Recovered/Resolved]
  - Therapeutic product effect incomplete [Unknown]
  - Therapeutic product effect incomplete [Unknown]
  - Rash vesicular [Unknown]
  - Headache [Unknown]

NARRATIVE: CASE EVENT DATE: 20210101
